FAERS Safety Report 6428765-8 (Version None)
Quarter: 2009Q4

REPORT INFORMATION
  Report Type: 
  Country: None (occurrence: None)
  Receive Date: 20091105
  Receipt Date: 20091021
  Transmission Date: 20100525
  Serious: Yes (Death, Hospitalization)
  Sender: FDA-Public Use
  Company Number: JP-GENENTECH-293430

PATIENT
  Age: 62 Year
  Sex: Male

DRUGS (5)
  1. AVASTIN [Suspect]
     Indication: COLON CANCER
     Route: 042
  2. IRINOTECAN HCL [Concomitant]
     Indication: COLON CANCER
  3. FLUOROURACIL [Concomitant]
     Indication: COLON CANCER
  4. LEVOLEUCOVORIN CALCIUM [Concomitant]
     Indication: COLON CANCER
  5. ELPLAT [Concomitant]
     Indication: COLON CANCER

REACTIONS (5)
  - DISSEMINATED INTRAVASCULAR COAGULATION [None]
  - EPISTAXIS [None]
  - HAEMOLYTIC ANAEMIA [None]
  - MELAENA [None]
  - MULTI-ORGAN FAILURE [None]
